FAERS Safety Report 9199041 (Version 2)
Quarter: 2013Q2

REPORT INFORMATION
  Report Type: Spontaneous
  Country: US (occurrence: None)
  Receive Date: 20130325
  Receipt Date: 20130409
  Transmission Date: 20140414
  Serious: No
  Sender: FDA-Public Use
  Company Number: 2013US-004606

PATIENT
  Age: 66 Year
  Sex: Female
  Weight: 60 kg

DRUGS (11)
  1. OMONTYS [Suspect]
     Indication: NEPHROGENIC ANAEMIA
     Dosage: 5 MG, Q 4 WEEKS, INTRAVENOUS
     Dates: start: 20130212, end: 20130212
  2. COLACE [Concomitant]
  3. FAMOTIDINE (FAMOTIDINE) [Concomitant]
  4. LISINOPRIL (LISINOPRIL) [Concomitant]
  5. LOPERAMIDE (LOPERAMIDE) [Concomitant]
  6. NEPHROCAPS (ASCORBIC ACID, BIOTIN, CYANOCOBALAMIN, FOLIC ACID, NICOTINAMIDE, PANTOTHENIC ACID, PYRIDOXINE HYDROCHLORIDE, RIBOFLAVIN, THIAMINE HYDROCHLORIDE) [Concomitant]
  7. RENVELA (SEVELAMER CARBONATE) [Concomitant]
  8. SENSIPAR (CINACALCET HYDROCHLORIDE) [Concomitant]
  9. ZEMPLAR (PARICALCITOL) [Concomitant]
  10. LIQUACEL [Concomitant]
  11. EPOGEN (EPOETIN ALFA) [Concomitant]

REACTIONS (2)
  - Pruritus [None]
  - Heart rate decreased [None]
